FAERS Safety Report 10242299 (Version 1)
Quarter: 2014Q2

REPORT INFORMATION
  Report Type: Spontaneous
  Country: NL (occurrence: NL)
  Receive Date: 20140617
  Receipt Date: 20140617
  Transmission Date: 20141212
  Serious: Yes (Hospitalization)
  Sender: FDA-Public Use
  Company Number: NL-PFIZER INC-2014162083

PATIENT
  Age: 64 Year
  Sex: Female
  Weight: 51 kg

DRUGS (2)
  1. INSPRA [Suspect]
     Indication: HYPERALDOSTERONISM
     Dosage: 100 MG, 2X/DAY
     Dates: start: 201301
  2. NIFEDIPINE [Concomitant]
     Dosage: 60 MG, 1X/DAY
     Dates: start: 2010

REACTIONS (2)
  - Pulmonary embolism [Recovering/Resolving]
  - Off label use [Unknown]
